FAERS Safety Report 17123956 (Version 4)
Quarter: 2020Q2

REPORT INFORMATION
  Report Type: Spontaneous
  Country: US (occurrence: US)
  Receive Date: 20191206
  Receipt Date: 20200511
  Transmission Date: 20200713
  Serious: Yes (Other)
  Sender: FDA-Public Use
  Company Number: US-ACTELION-A-NJ2019-198841

PATIENT
  Sex: Female
  Weight: 58.96 kg

DRUGS (2)
  1. OPSUMIT [Suspect]
     Active Substance: MACITENTAN
     Indication: PULMONARY ARTERIAL HYPERTENSION
     Dosage: 10 MG
     Route: 048
  2. UPTRAVI [Suspect]
     Active Substance: SELEXIPAG
     Indication: PULMONARY ARTERIAL HYPERTENSION
     Dosage: 800 MCG
     Route: 048

REACTIONS (4)
  - Visual impairment [Unknown]
  - Gastric disorder [Unknown]
  - Unevaluable event [Unknown]
  - Musculoskeletal discomfort [Unknown]
